FAERS Safety Report 4577881-4 (Version None)
Quarter: 2005Q1

REPORT INFORMATION
  Report Type: 
  Country: None (occurrence: None)
  Receive Date: 20050209
  Receipt Date: 20050131
  Transmission Date: 20050727
  Serious: Yes (Hospitalization)
  Sender: FDA-Public Use
  Company Number: 2005-02-0023

PATIENT
  Age: 42 Year
  Sex: Male

DRUGS (2)
  1. PEG-INTRON [Suspect]
     Dosage: 80 MCG QWK SUBCUTANEOUS
     Route: 058
     Dates: start: 20050105, end: 20050126
  2. REBETOL [Suspect]
     Dosage: 200 MG QWK ORAL
     Route: 048
     Dates: start: 20050105, end: 20050126

REACTIONS (1)
  - HYPERTENSION [None]
